FAERS Safety Report 9864956 (Version 2)
Quarter: 2014Q2

REPORT INFORMATION
  Report Type: Spontaneous
  Country: US (occurrence: US)
  Receive Date: 20140203
  Receipt Date: 20140402
  Transmission Date: 20141212
  Serious: No
  Sender: FDA-Public Use
  Company Number: US-AMGEN-USASP2014005804

PATIENT
  Age: 45 Year
  Sex: Female
  Weight: 118.82 kg

DRUGS (5)
  1. ENBREL [Suspect]
     Indication: RHEUMATOID ARTHRITIS
     Dosage: 50 MG, QWK
     Route: 058
     Dates: start: 20131122
  2. PLAQUENIL                          /00072602/ [Concomitant]
     Indication: RHEUMATOID ARTHRITIS
     Dosage: 200 MG, BID
     Route: 048
  3. OMEPRAZOLE [Concomitant]
     Dosage: 10 MG, QD
     Route: 048
  4. FOLIC ACID [Concomitant]
     Dosage: 1 MG, QD
     Route: 048
  5. BUSPIRONE [Concomitant]
     Dosage: 5 MG, BID
     Route: 048

REACTIONS (4)
  - Rhinorrhoea [Not Recovered/Not Resolved]
  - Cough [Not Recovered/Not Resolved]
  - Sneezing [Not Recovered/Not Resolved]
  - Head discomfort [Not Recovered/Not Resolved]
